FAERS Safety Report 4616132-9 (Version None)
Quarter: 2005Q1

REPORT INFORMATION
  Report Type: 
  Country: None (occurrence: None)
  Receive Date: 20050323
  Receipt Date: 20050314
  Transmission Date: 20050727
  Serious: Yes (Other)
  Sender: FDA-Public Use
  Company Number: US-ABBOTT-05P-163-0293909-00

PATIENT
  Sex: Female
  Weight: 109 kg

DRUGS (11)
  1. DEPAKOTE [Suspect]
     Indication: BIPOLAR DISORDER
     Route: 048
     Dates: start: 20050201, end: 20050307
  2. PROPRANOLOL HYDROCHLORIDE [Concomitant]
     Indication: MIGRAINE
     Route: 048
     Dates: start: 20010101
  3. PROPRANOLOL HYDROCHLORIDE [Concomitant]
     Indication: MITRAL VALVE DISEASE
  4. CLONAZEPAM [Concomitant]
     Indication: PANIC DISORDER
     Route: 048
     Dates: start: 20020101
  5. MIRTAZAPINE [Concomitant]
     Indication: DEPRESSION
     Route: 048
     Dates: start: 20020101
  6. TRAZODONE HCL [Concomitant]
     Indication: DEPRESSION
     Route: 048
     Dates: start: 20020101
  7. ARMOR THYROID [Concomitant]
     Indication: THYROID DISORDER
     Route: 048
     Dates: start: 20030101
  8. QUETIAPINE [Concomitant]
     Indication: DEPRESSION
     Route: 048
     Dates: start: 20030101
  9. OMEPRAZOLE [Concomitant]
     Indication: GASTRITIS
     Route: 048
     Dates: start: 20030101
  10. GLIBENCLAMIDE [Concomitant]
     Indication: DIABETES MELLITUS
     Route: 048
     Dates: start: 20030101
  11. METFORMIN HCL [Concomitant]
     Indication: DIABETES MELLITUS
     Route: 048
     Dates: start: 20030101

REACTIONS (15)
  - AMNESIA [None]
  - ANOREXIA [None]
  - APHASIA [None]
  - ASTHENIA [None]
  - CHEST PAIN [None]
  - DRUG LEVEL INCREASED [None]
  - DYSPNOEA [None]
  - ELECTROCARDIOGRAM T WAVE ABNORMAL [None]
  - FALL [None]
  - FATIGUE [None]
  - JAUNDICE [None]
  - SWELLING [None]
  - TREMOR [None]
  - VULVOVAGINAL DRYNESS [None]
  - WEIGHT DECREASED [None]
